FAERS Safety Report 7576220-4 (Version None)
Quarter: 2011Q2

REPORT INFORMATION
  Report Type: 
  Country: None (occurrence: None)
  Receive Date: 20110628
  Receipt Date: 20110614
  Transmission Date: 20111010
  Serious: Yes (Other)
  Sender: FDA-Public Use
  Company Number: US-BAYER-2010-008989

PATIENT
  Age: 34 Year
  Sex: Female
  Weight: 67 kg

DRUGS (3)
  1. YASMIN [Suspect]
     Indication: ACNE
     Dosage: UNK
  2. OMEPRAZOLE [Concomitant]
     Route: 048
  3. YASMIN [Suspect]
     Dosage: UNK

REACTIONS (4)
  - CHOLECYSTITIS [None]
  - PAIN [None]
  - ABDOMINAL PAIN [None]
  - INJURY [None]
